FAERS Safety Report 13985864 (Version 2)
Quarter: 2017Q4

REPORT INFORMATION
  Report Type: Spontaneous
  Country: US (occurrence: US)
  Receive Date: 20170919
  Receipt Date: 20171016
  Transmission Date: 20180321
  Serious: Yes (Other)
  Sender: FDA-Public Use
  Company Number: US-PFIZER INC-2017402050

PATIENT
  Age: 60 Year
  Sex: Female
  Weight: 106.5 kg

DRUGS (4)
  1. GABAPENTIN. [Suspect]
     Active Substance: GABAPENTIN
     Indication: FIBROMYALGIA
     Dosage: 800MG DOSAGE, TAKING IT 3 TIMES PER DAY
     Route: 048
  2. GABAPENTIN. [Suspect]
     Active Substance: GABAPENTIN
     Dosage: 200 MG, 3X/DAY (CURRENTLY 600 MG TOTAL / 200MG 3X/DAY)
     Route: 048
     Dates: start: 201707
  3. NEURONTIN [Suspect]
     Active Substance: GABAPENTIN
     Indication: FIBROMYALGIA
     Dosage: 200 MG, 3X/DAY (CURRENTLY 600 MG TOTAL / 200MG 3X/DAY)
     Route: 048
     Dates: start: 201707
  4. GABAPENTIN. [Suspect]
     Active Substance: GABAPENTIN
     Dosage: 200MG CAPSULES BY MOUTH THREE TIMES PER DAY
     Route: 048

REACTIONS (13)
  - Loss of personal independence in daily activities [Unknown]
  - Impaired work ability [Unknown]
  - Thinking abnormal [Not Recovered/Not Resolved]
  - Abnormal behaviour [Recovered/Resolved]
  - Disturbance in attention [Unknown]
  - Memory impairment [Recovered/Resolved]
  - Road traffic accident [Unknown]
  - Psychotic disorder [Unknown]
  - Feeling abnormal [Not Recovered/Not Resolved]
  - Arthritis [Unknown]
  - Condition aggravated [Unknown]
  - Impaired driving ability [Unknown]
  - Drug ineffective for unapproved indication [Unknown]
